FAERS Safety Report 5884852-4 (Version None)
Quarter: 2008Q3

REPORT INFORMATION
  Report Type: 
  Country: None (occurrence: None)
  Receive Date: 20080916
  Receipt Date: 20080910
  Transmission Date: 20090109
  Serious: Yes (Other)
  Sender: FDA-Public Use
  Company Number: US-BAYER-200830081NA

PATIENT
  Age: 37 Year
  Sex: Female
  Weight: 94 kg

DRUGS (3)
  1. MIRENA [Suspect]
     Indication: CONTRACEPTION
     Route: 015
     Dates: start: 20051101, end: 20080815
  2. FLAGYL [Concomitant]
     Indication: PROPHYLAXIS
     Route: 048
  3. AUGMENTIN '125' [Concomitant]
     Indication: PROPHYLAXIS
     Route: 048

REACTIONS (2)
  - IUCD COMPLICATION [None]
  - IUD MIGRATION [None]
